FAERS Safety Report 11725338 (Version 1)
Quarter: 2015Q4

REPORT INFORMATION
  Report Type: Spontaneous
  Country: US (occurrence: US)
  Receive Date: 20151110
  Receipt Date: 20151110
  Transmission Date: 20160304
  Serious: No
  Sender: FDA-Public Use
  Company Number: US-ELI_LILLY_AND_COMPANY-US201109007581

PATIENT
  Age: 54 Year
  Sex: Female

DRUGS (1)
  1. FORTEO [Suspect]
     Active Substance: TERIPARATIDE
     Indication: OSTEOPOROSIS
     Dosage: 20 UG, QD
     Route: 065

REACTIONS (10)
  - Injection site discolouration [Unknown]
  - Feeling abnormal [Unknown]
  - Neck pain [Unknown]
  - Nausea [Unknown]
  - Drug dose omission [Unknown]
  - Malaise [Unknown]
  - Headache [Unknown]
  - Fatigue [Unknown]
  - Tinnitus [Unknown]
  - Fear of disease [Unknown]

NARRATIVE: CASE EVENT DATE: 20110922
